FAERS Safety Report 10729336 (Version 3)
Quarter: 2015Q3

REPORT INFORMATION
  Report Type: Spontaneous
  Country: US (occurrence: US)
  Receive Date: 20150122
  Receipt Date: 20150831
  Transmission Date: 20151125
  Serious: Yes (Death, Hospitalization, Other)
  Sender: FDA-Public Use
  Company Number: US-009507513-1501USA007769

PATIENT
  Sex: Male
  Weight: 92.97 kg

DRUGS (1)
  1. JANUVIA [Suspect]
     Active Substance: SITAGLIPTIN PHOSPHATE
     Indication: TYPE 2 DIABETES MELLITUS
     Dosage: 100 MG, QD
     Route: 048
     Dates: start: 2007, end: 20090320

REACTIONS (36)
  - Osteoarthritis [Unknown]
  - Nocturia [Unknown]
  - Pleural effusion [Unknown]
  - Lymphadenopathy [Unknown]
  - Dyspnoea exertional [Unknown]
  - Thrombocytopenia [Unknown]
  - Spinal operation [Unknown]
  - Hyponatraemia [Unknown]
  - Aortic calcification [Unknown]
  - Atrial flutter [Unknown]
  - Ascites [Unknown]
  - Liver function test abnormal [Unknown]
  - Pulmonary oedema [Unknown]
  - Hypertension [Unknown]
  - Aortic aneurysm [Unknown]
  - Cardiomegaly [Unknown]
  - Pancreatic carcinoma metastatic [Fatal]
  - Pulmonary fibrosis [Unknown]
  - Dyspnoea [Unknown]
  - Cardiac failure congestive [Unknown]
  - Oedema peripheral [Unknown]
  - Peripheral vascular disorder [Unknown]
  - Pulmonary mass [Unknown]
  - Hypoxia [Unknown]
  - Coronary artery disease [Unknown]
  - Generalised oedema [Unknown]
  - Hypovolaemia [Unknown]
  - Vascular calcification [Unknown]
  - Chronic obstructive pulmonary disease [Not Recovered/Not Resolved]
  - Sinus node dysfunction [Unknown]
  - Metastases to liver [Unknown]
  - Respiratory failure [Unknown]
  - Cardiac pacemaker insertion [Unknown]
  - Lymphadenopathy [Unknown]
  - Peripheral artery aneurysm [Unknown]
  - Hyperlipidaemia [Unknown]

NARRATIVE: CASE EVENT DATE: 2008
